FAERS Safety Report 13876426 (Version 1)
Quarter: 2017Q3

REPORT INFORMATION
  Report Type: Spontaneous
  Country: US (occurrence: US)
  Receive Date: 20170817
  Receipt Date: 20170817
  Transmission Date: 20171127
  Serious: No
  Sender: FDA-Public Use
  Company Number: US-BAYER-2017-157169

PATIENT
  Age: 78 Year
  Sex: Female
  Weight: 70 kg

DRUGS (1)
  1. MIRALAX [Suspect]
     Active Substance: POLYETHYLENE GLYCOL 3350
     Indication: GASTROINTESTINAL DISORDER
     Dosage: 1 TABLESOON IN WATER., QD
     Route: 048
     Dates: start: 20170802

REACTIONS (3)
  - Product use issue [Unknown]
  - Expired product administered [None]
  - Incorrect drug administration duration [Unknown]

NARRATIVE: CASE EVENT DATE: 20170802
